FAERS Safety Report 17570664 (Version 1)
Quarter: 2020Q1

REPORT INFORMATION
  Report Type: Spontaneous
  Country: GB (occurrence: GB)
  Receive Date: 20200323
  Receipt Date: 20200323
  Transmission Date: 20200409
  Serious: Yes (Other)
  Sender: FDA-Public Use
  Company Number: GB-TEVA-2020-GB-1206495

PATIENT
  Age: 33 Year
  Sex: Female

DRUGS (1)
  1. LIDOCAINE. [Suspect]
     Active Substance: LIDOCAINE
     Indication: LOCAL ANAESTHESIA
     Dosage: 0.5 ML
     Route: 058
     Dates: start: 20200206, end: 20200206

REACTIONS (5)
  - Sensory loss [Recovered/Resolved]
  - Syncope [Recovered/Resolved]
  - Administration site hypersensitivity [Recovered/Resolved]
  - Monoplegia [Recovered/Resolved]
  - Muscular weakness [Recovered/Resolved]

NARRATIVE: CASE EVENT DATE: 20200206
